FAERS Safety Report 8067609-8 (Version None)
Quarter: 2012Q1

REPORT INFORMATION
  Report Type: 
  Country: None (occurrence: None)
  Receive Date: 20120124
  Receipt Date: 20120116
  Transmission Date: 20120608
  Serious: Yes (Other)
  Sender: FDA-Public Use
  Company Number: US-US-EMD SERONO, INC.-7003946

PATIENT
  Sex: Female

DRUGS (5)
  1. REBIF [Suspect]
     Route: 058
     Dates: start: 20100510, end: 20100621
  2. REBIF [Suspect]
     Route: 058
     Dates: start: 20100621, end: 20110901
  3. REBIF [Suspect]
     Indication: MULTIPLE SCLEROSIS
     Route: 058
     Dates: start: 20100405, end: 20100510
  4. ADDERALL 5 [Concomitant]
     Dates: start: 20100101
  5. ADDERALL 5 [Concomitant]
     Dates: start: 20100101

REACTIONS (6)
  - HEPATIC ENZYME INCREASED [None]
  - INJECTION SITE PAIN [None]
  - WEIGHT DECREASED [None]
  - HEADACHE [None]
  - INJECTION SITE ERYTHEMA [None]
  - BASAL CELL CARCINOMA [None]
